FAERS Safety Report 5536617-0 (Version None)
Quarter: 2007Q4

REPORT INFORMATION
  Report Type: 
  Country: None (occurrence: None)
  Receive Date: 20071206
  Receipt Date: 20070817
  Transmission Date: 20080405
  Serious: Yes (Other)
  Sender: FDA-Public Use
  Company Number: US-AMGEN-US202626

PATIENT
  Sex: Male

DRUGS (3)
  1. ENBREL [Suspect]
     Indication: PSORIASIS
     Route: 058
     Dates: start: 20050322
  2. LISINOPRIL [Concomitant]
     Route: 065
  3. FLOMAX [Concomitant]
     Route: 065

REACTIONS (2)
  - COLON CANCER [None]
  - DRUG INEFFECTIVE [None]
